FAERS Safety Report 4434271-2 (Version None)
Quarter: 2004Q3

REPORT INFORMATION
  Report Type: 
  Country: None (occurrence: None)
  Receive Date: 20040825
  Receipt Date: 20040804
  Transmission Date: 20050211
  Serious: Yes (Other)
  Sender: FDA-Public Use
  Company Number: JP_040804114

PATIENT
  Age: 21 Year
  Sex: Female
  Weight: 55 kg

DRUGS (3)
  1. ZYPREXA [Suspect]
     Indication: SCHIZOPHRENIA
     Dosage: 15 MG DAY
     Dates: start: 20040526, end: 20040620
  2. HALOPERIDOL [Concomitant]
  3. ARTANE [Concomitant]

REACTIONS (3)
  - DELUSION [None]
  - MALAISE [None]
  - PERSECUTORY DELUSION [None]
